FAERS Safety Report 9504429 (Version 1)
Quarter: 2013Q3

REPORT INFORMATION
  Report Type: Report from Study
  Country: CA (occurrence: CA)
  Receive Date: 20130906
  Receipt Date: 20130906
  Transmission Date: 20140515
  Serious: Yes (Other)
  Sender: FDA-Public Use
  Company Number: CA-JNJFOC-20130902106

PATIENT
  Age: 60 Year
  Sex: Male
  Weight: 75 kg

DRUGS (4)
  1. REMICADE [Suspect]
     Indication: CROHN^S DISEASE
     Route: 042
     Dates: start: 20130117
  2. TRIAZIDE [Concomitant]
     Route: 048
  3. VITAMIN B 12 [Concomitant]
     Dosage: MONTHLY
     Route: 030
  4. PROZAC [Concomitant]
     Route: 048

REACTIONS (2)
  - Laceration [Recovered/Resolved]
  - Infection [Recovered/Resolved]
